FAERS Safety Report 13841882 (Version 1)
Quarter: 2017Q3

REPORT INFORMATION
  Report Type: Report from Study
  Country: US (occurrence: US)
  Receive Date: 20170807
  Receipt Date: 20170807
  Transmission Date: 20171127
  Serious: No
  Sender: FDA-Public Use
  Company Number: US-AMGEN-USASL2016102302

PATIENT
  Age: 56 Year
  Sex: Male

DRUGS (2)
  1. NPLATE [Suspect]
     Active Substance: ROMIPLOSTIM
     Indication: IMMUNE THROMBOCYTOPENIC PURPURA
     Dosage: UNK, 3 TIMES/WK
     Route: 065
     Dates: start: 201606
  2. NPLATE [Suspect]
     Active Substance: ROMIPLOSTIM
     Indication: PLATELET COUNT ABNORMAL

REACTIONS (2)
  - Medical procedure [Unknown]
  - Off label use [Unknown]

NARRATIVE: CASE EVENT DATE: 201606
